FAERS Safety Report 4408529-7 (Version None)
Quarter: 2004Q3

REPORT INFORMATION
  Report Type: 
  Country: None (occurrence: None)
  Receive Date: 20040726
  Receipt Date: 20040706
  Transmission Date: 20050211
  Serious: No
  Sender: FDA-Public Use
  Company Number: 2004UW14194

PATIENT
  Age: 44 Year
  Sex: Male
  Weight: 94.3482 kg

DRUGS (4)
  1. CRESTOR [Suspect]
     Indication: HYPERCHOLESTEROLAEMIA
     Dosage: 20 MG QD PO
     Route: 048
     Dates: start: 20040401, end: 20040708
  2. CRESTOR [Suspect]
     Indication: HYPERCHOLESTEROLAEMIA
     Dosage: 10 MG QD PO
     Route: 048
     Dates: start: 20020302
  3. ATENOLOL    MERCK [Concomitant]
  4. ZOLOFT [Concomitant]

REACTIONS (1)
  - MYOPATHY [None]
